FAERS Safety Report 5756541-8 (Version None)
Quarter: 2008Q2

REPORT INFORMATION
  Report Type: 
  Country: None (occurrence: None)
  Receive Date: 20080529
  Receipt Date: 20080513
  Transmission Date: 20081010
  Serious: Yes (Death, Other)
  Sender: FDA-Public Use
  Company Number: 2008AL004886

PATIENT
  Age: 60 Year
  Sex: Male
  Weight: 158.759 kg

DRUGS (1)
  1. DIGOXIN [Suspect]
     Indication: CARDIAC DISORDER
     Dosage: 0.125MG PO
     Route: 048
     Dates: start: 20050101

REACTIONS (3)
  - ACCIDENTAL OVERDOSE [None]
  - ARTERIOSCLEROSIS [None]
  - TYPE 2 DIABETES MELLITUS [None]
